FAERS Safety Report 11290914 (Version 1)
Quarter: 2015Q3

REPORT INFORMATION
  Report Type: Spontaneous
  Country: US (occurrence: US)
  Receive Date: 20150722
  Receipt Date: 20150722
  Transmission Date: 20151125
  Serious: No
  Sender: FDA-Public Use
  Company Number: US-UNITED THERAPEUTICS-UNT-2015-005130

PATIENT
  Sex: Female
  Weight: 97.52 kg

DRUGS (5)
  1. REMODULIN [Suspect]
     Active Substance: TREPROSTINIL
     Dosage: 0.130 ?G/KG/MIN, CONTINUING
     Route: 041
  2. REMODULIN [Suspect]
     Active Substance: TREPROSTINIL
     Indication: PULMONARY ARTERIAL HYPERTENSION
     Dosage: 0.135 ?G/KG/MIN, CONTINUING
     Route: 041
     Dates: start: 20060807
  3. ADCIRCA [Concomitant]
     Active Substance: TADALAFIL
     Indication: PRODUCT USED FOR UNKNOWN INDICATION
  4. REMODULIN [Suspect]
     Active Substance: TREPROSTINIL
     Dosage: 0.115 ?G/KG/MIN, CONTINUING
     Route: 058
     Dates: start: 20100212
  5. REMODULIN [Suspect]
     Active Substance: TREPROSTINIL
     Dosage: 0.115 ?G/KG/MIN, CONTINUING
     Route: 041
     Dates: start: 20100212

REACTIONS (3)
  - Flushing [Unknown]
  - Pain [Unknown]
  - Malaise [Unknown]
